FAERS Safety Report 9551996 (Version 1)
Quarter: 2013Q3

REPORT INFORMATION
  Report Type: Spontaneous
  Country: US (occurrence: US)
  Receive Date: 20130925
  Receipt Date: 20130925
  Transmission Date: 20140515
  Serious: Yes (Other)
  Sender: FDA-Public Use
  Company Number: US-JNJFOC-20130909933

PATIENT
  Age: 29 Year
  Sex: Male

DRUGS (3)
  1. STELARA [Suspect]
     Indication: PSORIASIS
     Route: 058
     Dates: start: 201208
  2. STELARA [Suspect]
     Indication: PSORIASIS
     Route: 058
     Dates: start: 201105, end: 201208
  3. HUMIRA [Suspect]
     Indication: PSORIASIS
     Route: 065
     Dates: start: 2010, end: 2011

REACTIONS (1)
  - Mycosis fungoides [Unknown]
